FAERS Safety Report 8884611 (Version 1)
Quarter: 2012Q4

REPORT INFORMATION
  Report Type: 
  Country: CA (occurrence: CA)
  Receive Date: 20121102
  Receipt Date: 20121102
  Transmission Date: 20130627
  Serious: Yes (Hospitalization, Other)
  Sender: FDA-Public Use
  Company Number: CA-PFIZER INC-2012267705

PATIENT
  Age: 49 Year
  Sex: Female

DRUGS (2)
  1. CELEBREX [Suspect]
     Dosage: UNK
  2. ATACAND [Concomitant]
     Dosage: 8 mg, dialy

REACTIONS (4)
  - Acute myocardial infarction [Recovered/Resolved]
  - Angioedema [Unknown]
  - Hypertension [Unknown]
  - Dyslipidaemia [Unknown]
